FAERS Safety Report 5395253-X (Version None)
Quarter: 2007Q3

REPORT INFORMATION
  Report Type: 
  Country: None (occurrence: None)
  Receive Date: 20070724
  Receipt Date: 20070530
  Transmission Date: 20080115
  Serious: Yes (Hospitalization, Other)
  Sender: FDA-Public Use
  Company Number: US-PURDUE-USA_2007_0028369

PATIENT
  Sex: Male

DRUGS (1)
  1. OXYCONTIN [Suspect]
     Indication: ARTHRITIS
     Dosage: UNK MG, UNK
     Route: 048
     Dates: end: 20001001

REACTIONS (2)
  - DRUG DEPENDENCE [None]
  - HEPATITIS C [None]
